FAERS Safety Report 23542650 (Version 1)
Quarter: 2024Q1

REPORT INFORMATION
  Report Type: Spontaneous
  Country: NL (occurrence: NL)
  Receive Date: 20240220
  Receipt Date: 20240220
  Transmission Date: 20240410
  Serious: No
  Sender: FDA-Public Use
  Company Number: NL-ALKEM LABORATORIES LIMITED-NL-ALKEM-2023-10393

PATIENT
  Age: 20 Year
  Sex: Male

DRUGS (1)
  1. TRIAMCINOLONE ACETONIDE [Suspect]
     Active Substance: TRIAMCINOLONE ACETONIDE
     Indication: Keloid scar
     Dosage: UNK (4 STEROID INJECTIONS)
     Route: 065

REACTIONS (5)
  - Telangiectasia [Unknown]
  - Keloid scar [Unknown]
  - Atrophy [Unknown]
  - Disease recurrence [Unknown]
  - Skin hypopigmentation [Unknown]
